FAERS Safety Report 5360289-1 (Version None)
Quarter: 2007Q2

REPORT INFORMATION
  Report Type: 
  Country: None (occurrence: None)
  Receive Date: 20070614
  Receipt Date: 20070601
  Transmission Date: 20071010
  Serious: Yes (Hospitalization, Other)
  Sender: FDA-Public Use
  Company Number: X0LEGE0700004

PATIENT
  Age: 73 Year
  Sex: Male

DRUGS (2)
  1. XOLEGEL [Suspect]
  2. SIMVASTATIN [Concomitant]

REACTIONS (1)
  - RHABDOMYOLYSIS [None]
